FAERS Safety Report 12889501 (Version 1)
Quarter: 2016Q4

REPORT INFORMATION
  Report Type: Spontaneous
  Country: US (occurrence: US)
  Receive Date: 20161027
  Receipt Date: 20161027
  Transmission Date: 20170207
  Serious: Yes (Other)
  Sender: FDA-Public Use
  Company Number: US-PFIZER INC-2016493896

PATIENT
  Age: 2 Decade
  Sex: Male

DRUGS (5)
  1. DIPHENHYDRAMINE. [Suspect]
     Active Substance: DIPHENHYDRAMINE
     Dosage: UNK
  2. FENTANYL CITRATE. [Suspect]
     Active Substance: FENTANYL CITRATE
     Dosage: UNK
  3. ALPRAZOLAM. [Suspect]
     Active Substance: ALPRAZOLAM
     Dosage: UNK
  4. SERTRALINE HCL [Suspect]
     Active Substance: SERTRALINE HYDROCHLORIDE
     Dosage: UNK
  5. NALOXONE [Concomitant]
     Active Substance: NALOXONE
     Dosage: UNK

REACTIONS (5)
  - Depressed level of consciousness [Unknown]
  - Counterfeit drug administered [Unknown]
  - Product counterfeit [Unknown]
  - Intentional product misuse [Unknown]
  - Respiratory depression [Unknown]
